FAERS Safety Report 7709724-1 (Version None)
Quarter: 2011Q3

REPORT INFORMATION
  Report Type: 
  Country: None (occurrence: None)
  Receive Date: 20110825
  Receipt Date: 20110822
  Transmission Date: 20111222
  Serious: Yes (Hospitalization, Other)
  Sender: FDA-Public Use
  Company Number: GR-ABBOTT-10P-066-0659354-00

PATIENT
  Sex: Female
  Weight: 38 kg

DRUGS (3)
  1. HUMIRA [Suspect]
     Indication: CROHN'S DISEASE
     Route: 058
     Dates: start: 20090624, end: 20090624
  2. HUMIRA [Suspect]
     Route: 058
     Dates: start: 20090708
  3. LEVOTHYROXINE SODIUM [Concomitant]
     Indication: AUTOIMMUNE THYROIDITIS
     Route: 048
     Dates: start: 20000101

REACTIONS (1)
  - INTESTINAL OBSTRUCTION [None]
